FAERS Safety Report 25451126 (Version 1)
Quarter: 2025Q2

REPORT INFORMATION
  Report Type: Spontaneous
  Country: SK (occurrence: SK)
  Receive Date: 20250618
  Receipt Date: 20250618
  Transmission Date: 20250717
  Serious: Yes (Other)
  Sender: TAKEDA
  Company Number: SK-SANDOZ-SDZ2025SK036697

PATIENT
  Age: 26 Year
  Sex: Male

DRUGS (7)
  1. ENTYVIO [Suspect]
     Active Substance: VEDOLIZUMAB
     Indication: Crohn^s disease
  2. ADALIMUMAB [Suspect]
     Active Substance: ADALIMUMAB
     Indication: Crohn^s disease
  3. USTEKINUMAB [Suspect]
     Active Substance: USTEKINUMAB
     Indication: Crohn^s disease
  4. USTEKINUMAB [Suspect]
     Active Substance: USTEKINUMAB
  5. USTEKINUMAB [Suspect]
     Active Substance: USTEKINUMAB
  6. AZATHIOPRINE [Concomitant]
     Active Substance: AZATHIOPRINE
  7. CIPROFLOXACIN [Concomitant]
     Active Substance: CIPROFLOXACIN

REACTIONS (2)
  - Faecal calprotectin abnormal [Unknown]
  - Therapy non-responder [Unknown]
